FAERS Safety Report 25678763 (Version 1)
Quarter: 2025Q3

REPORT INFORMATION
  Report Type: Report from Study
  Country: US (occurrence: US)
  Receive Date: 20250814
  Receipt Date: 20250814
  Transmission Date: 20251020
  Serious: Yes (Congenital Anomaly, Other)
  Sender: Haleon PLC
  Company Number: US-HALEON-2257414

PATIENT
  Sex: Male
  Weight: 3.239 kg

DRUGS (2)
  1. EXCEDRIN TENSION HEADACHE [Suspect]
     Active Substance: ACETAMINOPHEN\CAFFEINE
     Indication: Product used for unknown indication
     Route: 064
  2. TYLENOL [Suspect]
     Active Substance: ACETAMINOPHEN
     Indication: Product used for unknown indication
     Route: 064

REACTIONS (4)
  - Congenital hydronephrosis [Recovering/Resolving]
  - Postnatal growth restriction [Recovering/Resolving]
  - Pyelocaliectasis [Recovering/Resolving]
  - Foetal exposure during pregnancy [Unknown]

NARRATIVE: CASE EVENT DATE: 20241021
